FAERS Safety Report 4426755-8 (Version None)
Quarter: 2004Q3

REPORT INFORMATION
  Report Type: 
  Country: None (occurrence: None)
  Receive Date: 20040816
  Receipt Date: 20040804
  Transmission Date: 20050211
  Serious: Yes (Other)
  Sender: FDA-Public Use
  Company Number: US-ROCHE-376803

PATIENT
  Age: 10 Year
  Sex: Female

DRUGS (1)
  1. ACCUTANE [Suspect]
     Indication: LICHEN SCLEROSUS
     Route: 048
     Dates: start: 19980615

REACTIONS (9)
  - ARTHRALGIA [None]
  - COLITIS ULCERATIVE [None]
  - DEPRESSION [None]
  - HYPOAESTHESIA [None]
  - MIGRAINE WITH AURA [None]
  - MOOD SWINGS [None]
  - RECTAL HAEMORRHAGE [None]
  - REFLEX SYMPATHETIC DYSTROPHY [None]
  - VISION BLURRED [None]
